FAERS Safety Report 7579122-2 (Version None)
Quarter: 2011Q2

REPORT INFORMATION
  Report Type: 
  Country: None (occurrence: None)
  Receive Date: 20110628
  Receipt Date: 20110621
  Transmission Date: 20111010
  Serious: Yes (Hospitalization, Other)
  Sender: FDA-Public Use
  Company Number: US-CELGENEUS-163-21880-11040955

PATIENT
  Sex: Female

DRUGS (7)
  1. DEXAMETHASONE [Suspect]
     Indication: PREMEDICATION
     Dosage: 20 MILLIGRAM
     Route: 051
     Dates: start: 20110201
  2. PHENERGAN HCL [Concomitant]
     Indication: NAUSEA
     Dosage: 12.5 MILLIGRAM
     Route: 065
     Dates: start: 20110603
  3. REVLIMID [Suspect]
     Indication: MULTIPLE MYELOMA
     Dosage: 25 MILLIGRAM
     Route: 048
     Dates: start: 20110203
  4. REVLIMID [Suspect]
     Dosage: 25 MILLIGRAM
     Route: 048
     Dates: start: 20110310, end: 20110328
  5. DEXAMETHASONE [Suspect]
     Dosage: 20 MILLIGRAM
     Route: 048
     Dates: start: 20110201
  6. ASPIRIN [Suspect]
     Route: 065
  7. ALLOPURINOL [Concomitant]
     Dosage: 300 MILLIGRAM
     Route: 065
     Dates: start: 20110419

REACTIONS (2)
  - MULTI-ORGAN FAILURE [None]
  - TUMOUR LYSIS SYNDROME [None]
